FAERS Safety Report 8407509-4 (Version None)
Quarter: 2012Q2

REPORT INFORMATION
  Report Type: 
  Country: None (occurrence: None)
  Receive Date: 20120604
  Receipt Date: 20120529
  Transmission Date: 20120825
  Serious: Yes (Death)
  Sender: FDA-Public Use
  Company Number: FR-ASTRAZENECA-2012SE16671

PATIENT
  Age: 28562 Day
  Sex: Male
  Weight: 59 kg

DRUGS (14)
  1. LASIX [Concomitant]
     Indication: CORONARY ARTERY BYPASS
     Dates: start: 20040101
  2. CRESTOR [Suspect]
     Indication: MYOCARDIAL INFARCTION
     Route: 048
     Dates: start: 20081215
  3. BISOPROLOL FUMARATE [Concomitant]
     Indication: MYOCARDIAL INFARCTION
     Dates: start: 20040101
  4. OMEXEL LP [Concomitant]
  5. ASPIRIN [Concomitant]
     Indication: MYOCARDIAL INFARCTION
     Dates: start: 20040101
  6. ASPIRIN [Concomitant]
     Indication: CORONARY ARTERY BYPASS
     Dates: start: 20040101
  7. CRESTOR [Suspect]
     Indication: CORONARY ARTERY BYPASS
     Route: 048
     Dates: start: 20081215
  8. RAMIPRIL [Concomitant]
     Indication: CORONARY ARTERY BYPASS
     Dates: start: 20040101
  9. BISOPROLOL FUMARATE [Concomitant]
     Indication: CORONARY ARTERY BYPASS
     Dates: start: 20040101
  10. LASIX [Concomitant]
     Indication: MYOCARDIAL INFARCTION
     Dates: start: 20040101
  11. RAMIPRIL [Concomitant]
     Indication: MYOCARDIAL INFARCTION
     Dates: start: 20040101
  12. AMARYL [Concomitant]
     Indication: TYPE 2 DIABETES MELLITUS
  13. NOVOLOG MIX 70/30 [Concomitant]
  14. OMEPRAZOLE [Concomitant]
     Dates: start: 20040101

REACTIONS (1)
  - INTERSTITIAL LUNG DISEASE [None]
